FAERS Safety Report 20101626 (Version 1)
Quarter: 2021Q4

REPORT INFORMATION
  Report Type: Spontaneous
  Country: US (occurrence: None)
  Receive Date: 20211122
  Receipt Date: 20211122
  Transmission Date: 20220304
  Serious: Yes (Death)
  Sender: FDA-Public Use
  Company Number: None

PATIENT
  Sex: Female

DRUGS (11)
  1. PROMACTA [Suspect]
     Active Substance: ELTROMBOPAG OLAMINE
     Indication: Immunodeficiency
     Dosage: FREQUENCY : DAILY;?
     Route: 048
     Dates: start: 20210611
  2. ATENOLOL [Concomitant]
     Active Substance: ATENOLOL
  3. CLARITIN [Concomitant]
     Active Substance: LORATADINE
  4. LOSARTAN [Concomitant]
     Active Substance: LOSARTAN
  5. PANTOPRAZOLE [Concomitant]
     Active Substance: PANTOPRAZOLE
  6. POSACONAZOLE [Concomitant]
     Active Substance: POSACONAZOLE
  7. SIROLIMUS [Concomitant]
     Active Substance: SIROLIMUS
  8. TACROLIMUS [Concomitant]
     Active Substance: TACROLIMUS
  9. URSODIOL [Concomitant]
     Active Substance: URSODIOL
  10. VALACYCLOVIR [Concomitant]
     Active Substance: VALACYCLOVIR HYDROCHLORIDE
  11. Vit D3 HP [Concomitant]

REACTIONS (1)
  - Death [None]
